FAERS Safety Report 24800211 (Version 1)
Quarter: 2025Q1

REPORT INFORMATION
  Report Type: Spontaneous
  Country: GR (occurrence: GR)
  Receive Date: 20250102
  Receipt Date: 20250102
  Transmission Date: 20250408
  Serious: Yes (Death, Hospitalization)
  Sender: ROCHE
  Company Number: GR-BoehringerIngelheim-2024-BI-070831

PATIENT
  Age: 78 Year
  Sex: Male

DRUGS (1)
  1. ALTEPLASE [Suspect]
     Active Substance: ALTEPLASE
     Indication: Ischaemic stroke
     Route: 042

REACTIONS (7)
  - Shock [Fatal]
  - Chest pain [Unknown]
  - Altered state of consciousness [Unknown]
  - Bradycardia [Unknown]
  - Oxygen saturation decreased [Unknown]
  - Acute myocardial infarction [Unknown]
  - Cardiac ventricular thrombosis [Unknown]
